FAERS Safety Report 10086370 (Version 6)
Quarter: 2015Q4

REPORT INFORMATION
  Report Type: Report from Study
  Country: US (occurrence: US)
  Receive Date: 20140418
  Receipt Date: 20151020
  Transmission Date: 20160304
  Serious: Yes (Disabling)
  Sender: FDA-Public Use
  Company Number: US-SA-2014SA048008

PATIENT
  Age: 46 Year
  Sex: Female

DRUGS (3)
  1. BOTOX [Concomitant]
     Active Substance: ONABOTULINUMTOXINA
  2. IMITREX [Concomitant]
     Active Substance: SUMATRIPTAN\SUMATRIPTAN SUCCINATE
  3. AUBAGIO [Suspect]
     Active Substance: TERIFLUNOMIDE
     Indication: MULTIPLE SCLEROSIS
     Route: 048
     Dates: start: 20140323, end: 20150702

REACTIONS (11)
  - Weight decreased [Unknown]
  - Ear infection [Unknown]
  - Faecal incontinence [Recovered/Resolved]
  - Unevaluable event [Unknown]
  - Visual impairment [Unknown]
  - Pain [Unknown]
  - Foot fracture [Not Recovered/Not Resolved]
  - Spinal column stenosis [Unknown]
  - Fall [Unknown]
  - Headache [Not Recovered/Not Resolved]
  - Hypertension [Unknown]

NARRATIVE: CASE EVENT DATE: 2014
